FAERS Safety Report 22050592 (Version 3)
Quarter: 2023Q2

REPORT INFORMATION
  Report Type: Spontaneous
  Country: US (occurrence: None)
  Receive Date: 20230301
  Receipt Date: 20230512
  Transmission Date: 20230721
  Serious: No
  Sender: FDA-Public Use
  Company Number: 2023A041025

PATIENT
  Age: 22465 Day
  Sex: Female
  Weight: 90.7 kg

DRUGS (22)
  1. SAPHNELO [Suspect]
     Active Substance: ANIFROLUMAB-FNIA
     Indication: Systemic lupus erythematosus
     Route: 041
     Dates: start: 20221217
  2. PREDNISONE [Concomitant]
     Active Substance: PREDNISONE
  3. FUROSEMIDE [Concomitant]
     Active Substance: FUROSEMIDE
     Dates: start: 202301
  4. ALBUTEROL [Concomitant]
     Active Substance: ALBUTEROL
     Dosage: EVERY WEEK OR EVERY OTHER WEEK
     Dates: start: 20221217
  5. GABAPENTIN [Concomitant]
     Active Substance: GABAPENTIN
  6. MODAFINIL [Concomitant]
     Active Substance: MODAFINIL
  7. LEVOTHYROXINE [Concomitant]
     Active Substance: LEVOTHYROXINE
  8. ASPIRIN [Concomitant]
     Active Substance: ASPIRIN
  9. BUPROPION [Concomitant]
     Active Substance: BUPROPION
  10. VITAMIN D3 [Concomitant]
     Active Substance: CHOLECALCIFEROL
  11. BIOTIN [Concomitant]
     Active Substance: BIOTIN
  12. CITALOPRAM [Concomitant]
     Active Substance: CITALOPRAM HYDROBROMIDE
  13. CYCLOBENZAPRINE [Concomitant]
     Active Substance: CYCLOBENZAPRINE
  14. FERROUS SULFATE [Concomitant]
     Active Substance: FERROUS SULFATE
  15. FOLIC ACID [Concomitant]
     Active Substance: FOLIC ACID
  16. LASIX [Concomitant]
     Active Substance: FUROSEMIDE
  17. HYDROXYCHLOROQUINE [Concomitant]
     Active Substance: HYDROXYCHLOROQUINE
  18. METHOTREXATE [Concomitant]
     Active Substance: METHOTREXATE
  19. PANTOPRAZOLE [Concomitant]
     Active Substance: PANTOPRAZOLE
  20. MAXOLT [Concomitant]
  21. RYTARY [Concomitant]
     Active Substance: CARBIDOPA\LEVODOPA
  22. SPIRONOLACTONE [Concomitant]
     Active Substance: SPIRONOLACTONE

REACTIONS (6)
  - Chest discomfort [Unknown]
  - Cough [Unknown]
  - Arthralgia [Unknown]
  - Peripheral swelling [Unknown]
  - Bronchitis [Unknown]
  - Intentional product misuse [Unknown]

NARRATIVE: CASE EVENT DATE: 20221221
